FAERS Safety Report 7092825-1 (Version None)
Quarter: 2010Q4

REPORT INFORMATION
  Report Type: 
  Country: None (occurrence: None)
  Receive Date: 20101110
  Receipt Date: 20101103
  Transmission Date: 20110411
  Serious: No
  Sender: FDA-Public Use
  Company Number: US-PFIZER INC-2010140353

PATIENT
  Sex: Male
  Weight: 79.365 kg

DRUGS (6)
  1. XALATAN [Suspect]
     Indication: GLAUCOMA
     Dosage: ONE DROP IN EACH EYE, 1X/DAY
     Dates: start: 20080101
  2. DORZOLAMIDE [Concomitant]
     Dosage: UNK, 2X/DAY
  3. DOXAZOSIN [Concomitant]
     Indication: PROSTATIC DISORDER
     Dosage: 8 MG, UNK
  4. FINASTERIDE [Concomitant]
     Indication: PROSTATIC DISORDER
     Dosage: 5 MG, UNK
  5. OMEPRAZOLE [Concomitant]
     Indication: GASTROOESOPHAGEAL REFLUX DISEASE
     Dosage: UNK
  6. MOBIC [Concomitant]
     Indication: ARTHRITIS
     Dosage: UNK

REACTIONS (2)
  - DRUG INEFFECTIVE [None]
  - PRODUCT DROPPER ISSUE [None]
